FAERS Safety Report 6034770-6 (Version None)
Quarter: 2009Q1

REPORT INFORMATION
  Report Type: 
  Country: None (occurrence: None)
  Receive Date: 20090112
  Receipt Date: 20090105
  Transmission Date: 20090719
  Serious: Yes (Disabling)
  Sender: FDA-Public Use
  Company Number: US-ELI_LILLY_AND_COMPANY-US200901000366

PATIENT
  Sex: Female

DRUGS (2)
  1. EVISTA [Suspect]
     Indication: PROPHYLAXIS
     Dosage: 60 MG, DAILY (1/D)
     Route: 065
     Dates: start: 19960101, end: 20081201
  2. LISINOPRIL [Concomitant]
     Indication: HYPERTENSION
     Dosage: 40 MG, DAILY (1/D)

REACTIONS (3)
  - CAROTID ARTERIOSCLEROSIS [None]
  - HIATUS HERNIA [None]
  - VISUAL ACUITY REDUCED [None]
